FAERS Safety Report 11587628 (Version 3)
Quarter: 2018Q2

REPORT INFORMATION
  Report Type: Spontaneous
  Country: US (occurrence: US)
  Receive Date: 20151001
  Receipt Date: 20180403
  Transmission Date: 20180711
  Serious: Yes (Death, Hospitalization, Other)
  Sender: FDA-Public Use
  Company Number: US-BIOMARINAP-US-2014-107582

PATIENT
  Sex: Female
  Weight: 12.7 kg

DRUGS (6)
  1. LASIX [Concomitant]
     Active Substance: FUROSEMIDE
     Indication: PRODUCT USED FOR UNKNOWN INDICATION
  2. VASOTEC [Concomitant]
     Active Substance: ENALAPRIL MALEATE
     Indication: PRODUCT USED FOR UNKNOWN INDICATION
  3. BUDESONIDE. [Concomitant]
     Active Substance: BUDESONIDE
     Indication: PRODUCT USED FOR UNKNOWN INDICATION
  4. ALDURAZYME [Suspect]
     Active Substance: LARONIDASE
     Indication: MUCOPOLYSACCHARIDOSIS I
     Dosage: 0.45 MG/KG, QW
     Route: 041
     Dates: start: 20120327, end: 201508
  5. ALDURAZYME [Suspect]
     Active Substance: LARONIDASE
     Dosage: 0.45 MG/KG, QW
     Route: 041
     Dates: start: 20150921, end: 20180101
  6. ALBUTEROL                          /00139501/ [Concomitant]
     Active Substance: ALBUTEROL
     Indication: PRODUCT USED FOR UNKNOWN INDICATION

REACTIONS (13)
  - Rhinovirus infection [Not Recovered/Not Resolved]
  - Dehydration [Not Recovered/Not Resolved]
  - Pneumonia [Not Recovered/Not Resolved]
  - Influenza [Recovered/Resolved]
  - Speech disorder [Not Recovered/Not Resolved]
  - Death [Fatal]
  - Gait inability [Not Recovered/Not Resolved]
  - Upper respiratory tract infection [Unknown]
  - Loss of consciousness [Not Recovered/Not Resolved]
  - Apnoea [Not Recovered/Not Resolved]
  - Hypersensitivity [Recovered/Resolved]
  - Viral infection [Not Recovered/Not Resolved]
  - Cyanosis [Not Recovered/Not Resolved]
